FAERS Safety Report 22201778 (Version 5)
Quarter: 2024Q1

REPORT INFORMATION
  Report Type: Spontaneous
  Country: US (occurrence: US)
  Receive Date: 20230412
  Receipt Date: 20240226
  Transmission Date: 20240409
  Serious: No
  Sender: FDA-Public Use
  Company Number: US-SA-SAC20230411001002

PATIENT
  Age: 69 Year
  Sex: Female

DRUGS (2)
  1. DUPIXENT [Suspect]
     Active Substance: DUPILUMAB
     Indication: Skin disorder
     Dosage: 300 MG, QOW
     Route: 058
     Dates: start: 20230127
  2. DUPIXENT [Suspect]
     Active Substance: DUPILUMAB
     Dosage: 300 MG, QOW
     Route: 058
     Dates: start: 202302

REACTIONS (12)
  - Diarrhoea [Unknown]
  - Aphthous ulcer [Unknown]
  - Weight increased [Unknown]
  - Dry mouth [Unknown]
  - Constipation [Unknown]
  - Restless legs syndrome [Unknown]
  - Eye infection [Unknown]
  - Blister [Unknown]
  - Injection site swelling [Unknown]
  - Lacrimation increased [Unknown]
  - Visual impairment [Unknown]
  - Product use in unapproved indication [Unknown]

NARRATIVE: CASE EVENT DATE: 20230101
